FAERS Safety Report 12951351 (Version 4)
Quarter: 2017Q2

REPORT INFORMATION
  Report Type: Report from Study
  Country: GB (occurrence: GB)
  Receive Date: 20161117
  Receipt Date: 20170609
  Transmission Date: 20170830
  Serious: Yes (Death, Other)
  Sender: FDA-Public Use
  Company Number: GB-SEATTLE GENETICS-2016SGN01805

PATIENT
  Age: 61 Year
  Sex: Male
  Weight: 62 kg

DRUGS (1)
  1. BRENTUXIMAB VEDOTIN [Suspect]
     Active Substance: BRENTUXIMAB VEDOTIN
     Indication: HODGKIN^S DISEASE
     Dosage: 110 MG, 3/WEEK
     Route: 042
     Dates: start: 20160607, end: 20161110

REACTIONS (2)
  - Cardiac arrest [Fatal]
  - Infusion site extravasation [Recovered/Resolved with Sequelae]

NARRATIVE: CASE EVENT DATE: 20161004
